FAERS Safety Report 5463372-5 (Version None)
Quarter: 2007Q3

REPORT INFORMATION
  Report Type: 
  Country: None (occurrence: None)
  Receive Date: 20070920
  Receipt Date: 20070910
  Transmission Date: 20080115
  Serious: Yes (Death, Life-Threatening, Hospitalization)
  Sender: FDA-Public Use
  Company Number: US-SANOFI-SYNTHELABO-F01200601390

PATIENT
  Sex: Female
  Weight: 52.61 kg

DRUGS (9)
  1. CALCIUM CARBONATE [Concomitant]
  2. TRIAMTERENE AND HYDROCHLOROTHIAZID HARRIS [Concomitant]
  3. ALTACE [Concomitant]
  4. PROTONIX [Concomitant]
     Dates: start: 20051219
  5. TOPROL-XL [Concomitant]
     Dates: start: 20051224
  6. METFORMIN HCL [Concomitant]
  7. ASPIRIN [Concomitant]
     Dates: start: 20051219
  8. LIPITOR [Concomitant]
     Dates: start: 20051219
  9. CLOPIDOGREL [Suspect]
     Indication: ACUTE CORONARY SYNDROME
     Dosage: UNK
     Route: 048
     Dates: start: 20051219, end: 20060317

REACTIONS (2)
  - CARDIAC ARREST [None]
  - RUPTURED CEREBRAL ANEURYSM [None]
